FAERS Safety Report 7692775-3 (Version None)
Quarter: 2011Q3

REPORT INFORMATION
  Report Type: 
  Country: None (occurrence: None)
  Receive Date: 20110819
  Receipt Date: 20110809
  Transmission Date: 20111222
  Serious: Yes (Other)
  Sender: FDA-Public Use
  Company Number: US-JNJFOC-20110805030

PATIENT
  Age: 75 Year
  Sex: Male

DRUGS (5)
  1. PREDNISOLONE [Concomitant]
     Route: 048
  2. INFLIXIMAB, RECOMBINANT [Suspect]
     Indication: SCLERITIS
     Route: 042
  3. CYCLOPHOSPHAMIDE [Concomitant]
     Indication: SCLERITIS
     Route: 048
  4. INFLIXIMAB, RECOMBINANT [Suspect]
     Route: 042
  5. AZATHIOPRINE [Concomitant]
     Indication: SCLERITIS
     Route: 048

REACTIONS (2)
  - CATARACT [None]
  - HERPES ZOSTER [None]
